FAERS Safety Report 16883839 (Version 4)
Quarter: 2020Q2

REPORT INFORMATION
  Report Type: Spontaneous
  Country: US (occurrence: US)
  Receive Date: 20191004
  Receipt Date: 20200629
  Transmission Date: 20200713
  Serious: Yes (Other)
  Sender: FDA-Public Use
  Company Number: US-PFIZER INC-2019427071

PATIENT
  Age: 66 Year
  Sex: Male
  Weight: 71.67 kg

DRUGS (2)
  1. VYNDAQEL [Suspect]
     Active Substance: TAFAMIDIS MEGLUMINE
     Indication: AMYLOIDOSIS
  2. VYNDAQEL [Suspect]
     Active Substance: TAFAMIDIS MEGLUMINE
     Indication: AMYLOIDOSIS SENILE
     Dosage: 80 MG (20MG FOUR CAPSULES) DAILY
     Route: 048
     Dates: start: 20190801, end: 20200611

REACTIONS (21)
  - Cardiac failure congestive [Unknown]
  - Disease recurrence [Unknown]
  - Product dispensing error [Unknown]
  - Nephropathy [Unknown]
  - Joint swelling [Unknown]
  - Hypokalaemia [Unknown]
  - Hypoacusis [Unknown]
  - Gout [Unknown]
  - Discomfort [Not Recovered/Not Resolved]
  - Memory impairment [Unknown]
  - Dizziness [Not Recovered/Not Resolved]
  - Condition aggravated [Unknown]
  - Pain [Not Recovered/Not Resolved]
  - Intentional product use issue [Not Recovered/Not Resolved]
  - Weight decreased [Not Recovered/Not Resolved]
  - Asthenia [Not Recovered/Not Resolved]
  - Eye disorder [Unknown]
  - Skin cancer [Unknown]
  - Carpal tunnel syndrome [Unknown]
  - Muscle atrophy [Not Recovered/Not Resolved]
  - Condition aggravated [Not Recovered/Not Resolved]
